FAERS Safety Report 18973444 (Version 9)
Quarter: 2025Q1

REPORT INFORMATION
  Report Type: Report from Study
  Country: US (occurrence: US)
  Receive Date: 20210305
  Receipt Date: 20250122
  Transmission Date: 20250408
  Serious: Yes (Hospitalization)
  Sender: TAKEDA
  Company Number: US-TAKEDA-US202031996

PATIENT
  Age: 16 Year
  Sex: Female

DRUGS (19)
  1. HUMAN IMMUNOGLOBULIN G [Suspect]
     Active Substance: HUMAN IMMUNOGLOBULIN G
     Indication: Primary immunodeficiency syndrome
     Dosage: 16 GRAM, 2/WEEK
  2. HUMAN IMMUNOGLOBULIN G [Suspect]
     Active Substance: HUMAN IMMUNOGLOBULIN G
     Indication: Immunodeficiency common variable
     Dosage: 16 GRAM, Q2WEEKS
  3. ACETAMINOPHEN [Concomitant]
     Active Substance: ACETAMINOPHEN
  4. EPINEPHRINE [Concomitant]
     Active Substance: EPINEPHRINE
  5. SPIRIVA [Concomitant]
     Active Substance: TIOTROPIUM BROMIDE MONOHYDRATE
  6. SINGULAIR [Concomitant]
     Active Substance: MONTELUKAST SODIUM
  7. IPRATROPIUM BROMIDE [Concomitant]
     Active Substance: IPRATROPIUM BROMIDE
  8. PATADAY ONCE DAILY RELIEF [Concomitant]
     Active Substance: OLOPATADINE HYDROCHLORIDE
  9. ALBUTEROL SULFATE [Concomitant]
     Active Substance: ALBUTEROL SULFATE
  10. ASTEPRO [Concomitant]
     Active Substance: AZELASTINE HYDROCHLORIDE
  11. XOLAIR [Concomitant]
     Active Substance: OMALIZUMAB
  12. LIDOCAINE [Concomitant]
     Active Substance: LIDOCAINE
  13. NASONEX [Concomitant]
     Active Substance: MOMETASONE FUROATE
  14. EPIPEN [Concomitant]
     Active Substance: EPINEPHRINE
  15. DIPHENHYDRAMINE HYDROCHLORIDE [Concomitant]
     Active Substance: DIPHENHYDRAMINE HYDROCHLORIDE
  16. ALLEGRA ALLERGY [Concomitant]
     Active Substance: FEXOFENADINE HYDROCHLORIDE
  17. ADVAIR HFA [Concomitant]
     Active Substance: FLUTICASONE PROPIONATE\SALMETEROL XINAFOATE
  18. XYZAL [Concomitant]
     Active Substance: LEVOCETIRIZINE DIHYDROCHLORIDE
  19. MUCINEX [Concomitant]
     Active Substance: GUAIFENESIN

REACTIONS (21)
  - Gastrointestinal disorder [Not Recovered/Not Resolved]
  - Weight decreased [Unknown]
  - Immunoglobulins decreased [Unknown]
  - Feeding disorder [Unknown]
  - Hunger [Unknown]
  - Underweight [Not Recovered/Not Resolved]
  - Breast mass [Unknown]
  - Bronchitis [Unknown]
  - Blood glucose abnormal [Unknown]
  - Weight gain poor [Unknown]
  - Lactose intolerance [Unknown]
  - Memory impairment [Unknown]
  - Illness [Recovered/Resolved]
  - Weight increased [Unknown]
  - Sinusitis [Unknown]
  - Upper respiratory tract infection [Recovered/Resolved]
  - Nasal congestion [Unknown]
  - Somnolence [Unknown]
  - Asthenia [Recovered/Resolved]
  - Influenza like illness [Not Recovered/Not Resolved]
  - Fatigue [Unknown]

NARRATIVE: CASE EVENT DATE: 20200929
